FAERS Safety Report 7988896-8 (Version None)
Quarter: 2011Q4

REPORT INFORMATION
  Report Type: 
  Country: None (occurrence: None)
  Receive Date: 20111215
  Receipt Date: 20111215
  Transmission Date: 20120403
  Serious: No
  Sender: FDA-Public Use
  Company Number: None

PATIENT
  Age: 65 Year
  Sex: Female
  Weight: 68.0396 kg

DRUGS (1)
  1. RECLAST [Suspect]
     Dosage: 1 TIME

REACTIONS (4)
  - NECK PAIN [None]
  - FACIAL PAIN [None]
  - JAW DISORDER [None]
  - HEADACHE [None]
